FAERS Safety Report 7147780-2 (Version None)
Quarter: 2010Q4

REPORT INFORMATION
  Report Type: 
  Country: None (occurrence: None)
  Receive Date: 20101209
  Receipt Date: 20101130
  Transmission Date: 20110411
  Serious: No
  Sender: FDA-Public Use
  Company Number: US-BIOGENIDEC-2010BI042548

PATIENT
  Age: 24 Year
  Sex: Female

DRUGS (4)
  1. AVONEX [Suspect]
     Indication: MULTIPLE SCLEROSIS
     Route: 030
     Dates: start: 20010701, end: 20010901
  2. AVONEX [Suspect]
     Route: 030
     Dates: start: 20020101, end: 20041201
  3. AVONEX [Suspect]
     Route: 030
     Dates: start: 20060101, end: 20080901
  4. REBIF [Concomitant]
     Indication: MULTIPLE SCLEROSIS
     Route: 030
     Dates: start: 20010901, end: 20010101

REACTIONS (4)
  - DIARRHOEA [None]
  - MEMORY IMPAIRMENT [None]
  - MULTIPLE SCLEROSIS RELAPSE [None]
  - VOMITING [None]
